FAERS Safety Report 4795027-4 (Version None)
Quarter: 2005Q4

REPORT INFORMATION
  Report Type: 
  Country: None (occurrence: None)
  Receive Date: 20051012
  Receipt Date: 20051005
  Transmission Date: 20060501
  Serious: Yes (Other)
  Sender: FDA-Public Use
  Company Number: PHEH2005US11120

PATIENT
  Age: 86 Year
  Sex: Male

DRUGS (2)
  1. ZELNORM [Suspect]
     Indication: CONSTIPATION
     Dosage: 6 MG, BID
     Route: 048
     Dates: start: 20050905
  2. MILK OF MAGNESIA TAB [Suspect]
     Dosage: TSP, ONCE/SINGLE
     Route: 048
     Dates: start: 20051004, end: 20051004

REACTIONS (3)
  - DIARRHOEA [None]
  - DIZZINESS [None]
  - STOMACH DISCOMFORT [None]
